FAERS Safety Report 9190137 (Version 1)
Quarter: 2013Q1

REPORT INFORMATION
  Report Type: Spontaneous
  Country: US (occurrence: None)
  Receive Date: 20130325
  Receipt Date: 20130325
  Transmission Date: 20140127
  Serious: Yes (Life-Threatening, Hospitalization)
  Sender: FDA-Public Use
  Company Number: None

PATIENT
  Age: 26 Year
  Sex: Female
  Weight: 97.52 kg

DRUGS (2)
  1. KARIVA [Suspect]
     Indication: CONTRACEPTION
     Dosage: DESOGESTREL 0.5MG; ESTRADIOL 0.02MG  ONE TABLET ONCE BY MOUTH?18 YEARS OLD TO CURRENT 26
     Route: 048
  2. KARIVA [Suspect]
     Indication: MUSCLE SPASMS
     Dosage: DESOGESTREL 0.5MG; ESTRADIOL 0.02MG  ONE TABLET ONCE BY MOUTH?18 YEARS OLD TO CURRENT 26
     Route: 048

REACTIONS (4)
  - Pulmonary embolism [None]
  - Loss of consciousness [None]
  - Contusion [None]
  - Lip disorder [None]
